FAERS Safety Report 7156991-1 (Version None)
Quarter: 2010Q4

REPORT INFORMATION
  Report Type: 
  Country: None (occurrence: None)
  Receive Date: 20101214
  Receipt Date: 20100114
  Transmission Date: 20110411
  Serious: No
  Sender: FDA-Public Use
  Company Number: US-ASTRAZENECA-2010SE01781

PATIENT
  Sex: Female
  Weight: 49.9 kg

DRUGS (3)
  1. CRESTOR [Suspect]
     Indication: BLOOD CHOLESTEROL INCREASED
     Route: 048
     Dates: start: 20091101
  2. ATENOLOL [Concomitant]
     Indication: HYPERTENSION
  3. VITAMINS [Concomitant]

REACTIONS (2)
  - ALOPECIA [None]
  - NAIL DISORDER [None]
